FAERS Safety Report 5806437-8 (Version None)
Quarter: 2008Q3

REPORT INFORMATION
  Report Type: 
  Country: None (occurrence: None)
  Receive Date: 20080708
  Receipt Date: 20080623
  Transmission Date: 20090109
  Serious: Yes (Other)
  Sender: FDA-Public Use
  Company Number: 2008S1008927

PATIENT
  Age: 68 Year
  Sex: Female

DRUGS (8)
  1. CLONIDINE HCL [Suspect]
     Indication: HYPERTENSION
     Dosage: 0.1 MG;TWICE A DAY;ORAL, 0.05MG;TWICE A DAY;ORAL
     Route: 048
     Dates: start: 20080520, end: 20080521
  2. AVALIDE [Suspect]
  3. INSULIN [Concomitant]
  4. DIOVAN /01319601/ [Concomitant]
  5. TOPROL-XL [Concomitant]
  6. ASPIRIN [Concomitant]
  7. TRICOR /00499301/ [Concomitant]
  8. VYTORIN [Concomitant]

REACTIONS (3)
  - DYSPNOEA [None]
  - EYE SWELLING [None]
  - LIP SWELLING [None]
